FAERS Safety Report 15172055 (Version 4)
Quarter: 2019Q1

REPORT INFORMATION
  Report Type: Report from Study
  Country: JP (occurrence: JP)
  Receive Date: 20180720
  Receipt Date: 20190318
  Transmission Date: 20190417
  Serious: Yes (Other)
  Sender: FDA-Public Use
  Company Number: JP-UCBSA-2018031858

PATIENT
  Age: 50 Year
  Sex: Male
  Weight: 55 kg

DRUGS (23)
  1. HIRNAMIN [Suspect]
     Active Substance: LEVOMEPROMAZINE
     Indication: PRODUCT USED FOR UNKNOWN INDICATION
     Dosage: 5 MG DAILY
     Route: 048
  2. ABILIFY [Suspect]
     Active Substance: ARIPIPRAZOLE
     Dosage: 12 MG DAILY DOSE
     Route: 048
     Dates: start: 20180124, end: 20180206
  3. LAMICTAL [Suspect]
     Active Substance: LAMOTRIGINE
     Indication: SIMPLE PARTIAL SEIZURES
     Dosage: 350 MG DAILY
     Route: 048
     Dates: end: 20180327
  4. ABILIFY [Suspect]
     Active Substance: ARIPIPRAZOLE
     Indication: PRODUCT USED FOR UNKNOWN INDICATION
     Dosage: 12 MG A DAY
     Route: 048
     Dates: end: 20180109
  5. LACOSAMIDE. [Suspect]
     Active Substance: LACOSAMIDE
     Dosage: 125 MG, 2X/DAY (BID)
     Route: 048
     Dates: start: 20180221
  6. PHENOBAL [Suspect]
     Active Substance: PHENOBARBITAL
     Indication: SIMPLE PARTIAL SEIZURES
     Dosage: 90 MG A DAY
     Route: 048
  7. SODIUM VALPROATE [Suspect]
     Active Substance: VALPROATE SODIUM
     Indication: SIMPLE PARTIAL SEIZURES
     Dosage: 400 MG A DAY
     Route: 048
     Dates: end: 20180313
  8. LACOSAMIDE. [Suspect]
     Active Substance: LACOSAMIDE
     Dosage: 75 MG, 2X/DAY (BID)
     Route: 048
     Dates: start: 20180124, end: 20180206
  9. FLUNITRAZEPAM [Suspect]
     Active Substance: FLUNITRAZEPAM
     Indication: PRODUCT USED FOR UNKNOWN INDICATION
     Dosage: 2 MG A DAY
     Route: 048
  10. HIRNAMIN [Suspect]
     Active Substance: LEVOMEPROMAZINE
     Dosage: 30 MG DAILY DOSE
     Route: 048
     Dates: end: 20180123
  11. HIRNAMIN [Suspect]
     Active Substance: LEVOMEPROMAZINE
     Dosage: UNK
     Route: 048
     Dates: start: 20180124
  12. FAD (FLAVIN ADENINE DINUCLEOTIDE) [Suspect]
     Active Substance: FLAVIN ADENINE DINUCLEOTIDE
     Indication: PRODUCT USED FOR UNKNOWN INDICATION
     Dosage: 20 MG A DAY
     Route: 048
     Dates: end: 20180420
  13. RISPERDAL [Concomitant]
     Active Substance: RISPERIDONE
     Indication: PRODUCT USED FOR UNKNOWN INDICATION
  14. LACOSAMIDE. [Suspect]
     Active Substance: LACOSAMIDE
     Indication: FOCAL DYSCOGNITIVE SEIZURES
     Dosage: 50 MG, ONCE DAILY (QD)
     Route: 048
     Dates: start: 20171227, end: 20180109
  15. LACOSAMIDE. [Suspect]
     Active Substance: LACOSAMIDE
     Dosage: 100 MG, 2X/DAY (BID)
     Route: 048
     Dates: start: 20180207, end: 20180220
  16. E KEPPRA [Suspect]
     Active Substance: LEVETIRACETAM
     Indication: SIMPLE PARTIAL SEIZURES
     Dosage: 2000 MG DAILY
     Route: 048
  17. SODIUM VALPROATE [Suspect]
     Active Substance: VALPROATE SODIUM
     Dosage: 800 MG DAILY DOSE
     Route: 048
     Dates: start: 20180314, end: 20180621
  18. E KEPPRA [Suspect]
     Active Substance: LEVETIRACETAM
     Dosage: 1000 MG DAILY DOSE
     Route: 048
     Dates: start: 20180221, end: 20180422
  19. LAMICTAL [Suspect]
     Active Substance: LAMOTRIGINE
     Dosage: 300 MG DAILY DOSE
     Route: 048
     Dates: start: 20180328, end: 20180410
  20. LACOSAMIDE. [Suspect]
     Active Substance: LACOSAMIDE
     Indication: SIMPLE PARTIAL SEIZURES
     Dosage: 25 MG, ONCE DAILY (QD)
     Route: 048
     Dates: start: 20171213, end: 20171226
  21. LACOSAMIDE. [Suspect]
     Active Substance: LACOSAMIDE
     Indication: PARTIAL SEIZURES WITH SECONDARY GENERALISATION
     Dosage: 50 MG, 2X/DAY (BID)
     Route: 048
     Dates: start: 20180110, end: 20180123
  22. E KEPPRA [Suspect]
     Active Substance: LEVETIRACETAM
     Dosage: 1500 MG DAILY
     Route: 048
     Dates: start: 20180207, end: 20180220
  23. TEGRETOL [Suspect]
     Active Substance: CARBAMAZEPINE
     Indication: SIMPLE PARTIAL SEIZURES
     Dosage: 900 MG DAILY
     Route: 048
     Dates: end: 20180614

REACTIONS (8)
  - Inappropriate schedule of product administration [Unknown]
  - Haematocrit decreased [Not Recovered/Not Resolved]
  - White blood cell count decreased [Not Recovered/Not Resolved]
  - Red blood cell count decreased [Not Recovered/Not Resolved]
  - Electrolyte imbalance [Not Recovered/Not Resolved]
  - Hypertension [Recovered/Resolved]
  - Gamma-glutamyltransferase increased [Recovered/Resolved]
  - Blood alkaline phosphatase increased [Recovered/Resolved]

NARRATIVE: CASE EVENT DATE: 20180307
